FAERS Safety Report 8380338-6 (Version None)
Quarter: 2012Q2

REPORT INFORMATION
  Report Type: 
  Country: None (occurrence: None)
  Receive Date: 20120523
  Receipt Date: 20120516
  Transmission Date: 20120825
  Serious: Yes (Hospitalization)
  Sender: FDA-Public Use
  Company Number: FR-GILEAD-2012-0055230

PATIENT
  Age: 47 Year
  Sex: Female

DRUGS (6)
  1. ISENTRESS [Concomitant]
  2. SUBUTEX [Concomitant]
  3. SUSTIVA [Concomitant]
  4. PAROXETINE HYDROCHLORIDE [Concomitant]
  5. TRUVADA [Suspect]
     Indication: HIV INFECTION
     Dosage: 1 DF, QD
     Route: 048
     Dates: start: 20080101, end: 20100201
  6. BACTRIM [Concomitant]

REACTIONS (1)
  - RENAL TUBULAR DISORDER [None]
